FAERS Safety Report 10495232 (Version 1)
Quarter: 2014Q3

REPORT INFORMATION
  Report Type: Spontaneous
  Country: US (occurrence: None)
  Receive Date: 20140815
  Receipt Date: 20140815
  Transmission Date: 20150326
  Serious: Yes (Other)
  Sender: FDA-Public Use
  Company Number: ADR-2008-5078

PATIENT
  Age: 55 Year
  Sex: Male

DRUGS (2)
  1. FENTANYL INTRATHECAL [Suspect]
     Active Substance: FENTANYL
  2. BACLOFEN. [Suspect]
     Active Substance: BACLOFEN
     Indication: MUSCLE SPASTICITY

REACTIONS (6)
  - Therapeutic response decreased [None]
  - Unevaluable event [None]
  - Nausea [None]
  - Nuclear magnetic resonance imaging thoracic abnormal [None]
  - Diarrhoea [None]
  - Vomiting [None]
